FAERS Safety Report 6221867-0 (Version None)
Quarter: 2009Q2

REPORT INFORMATION
  Report Type: 
  Country: None (occurrence: None)
  Receive Date: 20090611
  Receipt Date: 20071231
  Transmission Date: 20091009
  Serious: Yes (Other)
  Sender: FDA-Public Use
  Company Number: US-ASTRAZENECA-2006UW22997

PATIENT
  Age: 14161 Day
  Sex: Female
  Weight: 122.2 kg

DRUGS (23)
  1. SEROQUEL [Suspect]
     Indication: SCHIZOPHRENIA
     Route: 048
     Dates: start: 20030101, end: 20050101
  2. SEROQUEL [Suspect]
     Indication: DEPRESSION
     Route: 048
     Dates: start: 20030101, end: 20050101
  3. SEROQUEL [Suspect]
     Indication: BIPOLAR DISORDER
     Route: 048
     Dates: start: 20030101, end: 20050101
  4. SEROQUEL [Suspect]
     Dosage: 100 MG EVERY EIGHT HOURS, ONE AND 1/2 TABLET BY MOUTH TWICE DAILY AND 2 TABLETS AT BEDTIME DAILY
     Route: 048
     Dates: start: 20041207
  5. SEROQUEL [Suspect]
     Dosage: 100 MG EVERY EIGHT HOURS, ONE AND 1/2 TABLET BY MOUTH TWICE DAILY AND 2 TABLETS AT BEDTIME DAILY
     Route: 048
     Dates: start: 20041207
  6. SEROQUEL [Suspect]
     Dosage: 100 MG EVERY EIGHT HOURS, ONE AND 1/2 TABLET BY MOUTH TWICE DAILY AND 2 TABLETS AT BEDTIME DAILY
     Route: 048
     Dates: start: 20041207
  7. METFORMIN HCL [Concomitant]
     Route: 048
     Dates: start: 20051130
  8. MS CONTIN [Concomitant]
     Indication: PAIN
     Route: 048
     Dates: start: 20060313
  9. TRIMETHOBENZAMIDE HCL [Concomitant]
     Route: 048
     Dates: start: 20060313
  10. EFFEXOR XR [Concomitant]
     Route: 048
     Dates: start: 20040216
  11. CELEXA [Concomitant]
     Route: 048
     Dates: start: 20060928
  12. PRECOSE [Concomitant]
     Route: 048
     Dates: start: 20060907
  13. ATIVAN [Concomitant]
     Indication: ANXIETY
     Dosage: ONE TO TWO TABLETS BY MOUTH TWICE DAILY
     Dates: start: 20060907
  14. LORTAB [Concomitant]
     Dosage: 7.5 - 500 MG, 5 - 500 MG ONE AT NIGHT AS NEEDED
     Route: 048
     Dates: start: 20021203
  15. FLEXERIL [Concomitant]
     Route: 048
     Dates: start: 20041203
  16. PREDNISONE [Concomitant]
     Dosage: 10 MG 6 TABLETS DAILY,FOR 3 DAYS,4 TABLETS FOR 3 DAYS,2 TABLETS DAILY FOR 3 DAYS,1TABLET DAILY FOR 4
     Route: 048
     Dates: start: 20041207
  17. NEURONTIN [Concomitant]
     Dosage: 100 MG ONE PER MOUTH AT NIGHT, TAPER UP BY 100 MG Q 3 D UNTIL 400 MG PER ORAL AT NIGHT
     Dates: start: 20050107
  18. LASIX [Concomitant]
     Dosage: 20 MG ONE HALF
     Route: 048
     Dates: start: 20061223
  19. PRINIVIL [Concomitant]
     Route: 048
     Dates: start: 20061223
  20. ASPIRIN [Concomitant]
     Route: 048
     Dates: start: 20061223
  21. PRILOSEC [Concomitant]
     Route: 048
     Dates: start: 20070227
  22. VALIUM [Concomitant]
     Indication: ANXIETY
     Route: 048
     Dates: start: 20070227
  23. LANTUS [Concomitant]
     Dosage: 100 U/ML 38 UNITS DAILY
     Route: 058
     Dates: start: 20070227

REACTIONS (4)
  - DIABETES MELLITUS [None]
  - DIABETES MELLITUS INADEQUATE CONTROL [None]
  - DIABETIC NEUROPATHY [None]
  - TYPE 2 DIABETES MELLITUS [None]
